FAERS Safety Report 20085059 (Version 1)
Quarter: 2021Q4

REPORT INFORMATION
  Report Type: Spontaneous
  Country: FR (occurrence: FR)
  Receive Date: 20211118
  Receipt Date: 20211118
  Transmission Date: 20220304
  Serious: Yes (Other)
  Sender: FDA-Public Use
  Company Number: FR-JNJFOC-20211059904

PATIENT
  Age: 59 Year
  Sex: Female

DRUGS (4)
  1. LENALIDOMIDE [Suspect]
     Active Substance: LENALIDOMIDE
     Indication: Plasma cell myeloma
     Dosage: 7 DOSAGE FORM, EVERY WEEK
     Route: 065
     Dates: start: 2018, end: 20190129
  2. MELPHALAN [Suspect]
     Active Substance: MELPHALAN
     Indication: Plasma cell myeloma
     Dosage: 1 DOSAGE FORM, EVERY WEEK
     Route: 065
     Dates: start: 2018, end: 20190129
  3. DEXAMETHASONE [Suspect]
     Active Substance: DEXAMETHASONE
     Indication: Plasma cell myeloma
     Dosage: 2 DOSAGE FORM, EVERY WEEK
     Route: 065
     Dates: start: 2018, end: 20190129
  4. VELCADE [Suspect]
     Active Substance: BORTEZOMIB
     Indication: Plasma cell myeloma
     Dosage: 2 DOSAGE FORM, EVERY WEEK
     Route: 065
     Dates: start: 2018, end: 20190129

REACTIONS (1)
  - Atrial fibrillation [Unknown]
